FAERS Safety Report 5759342-X (Version None)
Quarter: 2008Q2

REPORT INFORMATION
  Report Type: 
  Country: None (occurrence: None)
  Receive Date: 20080602
  Receipt Date: 20080519
  Transmission Date: 20081010
  Serious: Yes (Hospitalization)
  Sender: FDA-Public Use
  Company Number: B0522621A

PATIENT
  Age: 76 Year
  Sex: Female

DRUGS (4)
  1. ACYCLOVIR [Suspect]
     Indication: HERPES ZOSTER
     Dosage: 12 MG/KG / THREE TIMES PER DAY / INTRA
     Route: 042
  2. PERINDOPRIL [Concomitant]
  3. METFORMIN HYDROCHLORIDE [Concomitant]
  4. ALENDRONATE SODIUM [Concomitant]

REACTIONS (2)
  - INAPPROPRIATE ANTIDIURETIC HORMONE SECRETION [None]
  - PLATELET COUNT INCREASED [None]
